FAERS Safety Report 8358653-1 (Version None)
Quarter: 2012Q2

REPORT INFORMATION
  Report Type: 
  Country: None (occurrence: None)
  Receive Date: 20120514
  Receipt Date: 20120502
  Transmission Date: 20120825
  Serious: No
  Sender: FDA-Public Use
  Company Number: BR-MERCK-1202BRA00036

PATIENT
  Sex: Male
  Weight: 95 kg

DRUGS (9)
  1. VYTORIN [Suspect]
     Route: 048
     Dates: start: 20100101, end: 20120201
  2. VYTORIN [Suspect]
     Route: 048
     Dates: start: 20120201, end: 20120401
  3. VYTORIN [Suspect]
     Route: 048
     Dates: start: 20120201, end: 20120401
  4. JANUMET [Suspect]
     Indication: DIABETES MELLITUS
     Route: 048
     Dates: start: 20120206
  5. VYTORIN [Suspect]
     Indication: HIGH DENSITY LIPOPROTEIN INCREASED
     Route: 048
     Dates: start: 20100101, end: 20120201
  6. VALSARTAN [Concomitant]
     Indication: HYPERTENSION
     Route: 048
     Dates: start: 20110101
  7. VYTORIN [Suspect]
     Route: 048
     Dates: start: 20100101, end: 20120201
  8. CLOPIDOGREL BISULFATE [Concomitant]
     Indication: HYPERTENSION
     Route: 048
     Dates: start: 20110101
  9. VYTORIN [Suspect]
     Indication: LOW DENSITY LIPOPROTEIN INCREASED
     Route: 048
     Dates: start: 20100101, end: 20120201

REACTIONS (3)
  - NAUSEA [None]
  - CARDIAC DISORDER [None]
  - MUSCLE SPASMS [None]
